FAERS Safety Report 6767786-2 (Version None)
Quarter: 2010Q2

REPORT INFORMATION
  Report Type: 
  Country: None (occurrence: None)
  Receive Date: 20100614
  Receipt Date: 20100601
  Transmission Date: 20101027
  Serious: Yes (Other)
  Sender: FDA-Public Use
  Company Number: PHHY2010US26143

PATIENT
  Sex: Male

DRUGS (7)
  1. VALTURNA [Suspect]
     Indication: HYPERTENSION
     Dosage: 150/160 MG
     Route: 048
     Dates: start: 20100317, end: 20100422
  2. KLOR-CON [Concomitant]
     Indication: SWELLING
     Dosage: 10 MEQ, 1QD
     Route: 048
  3. FUROSEMIDE [Concomitant]
     Indication: SWELLING
     Dosage: 40 MG, QOD
     Dates: start: 20100314
  4. SIMVASTATIN [Concomitant]
     Dosage: 20 MG
  5. BISOPROLOL HCT [Concomitant]
     Dosage: 5/6.25, ONCE DAILY
     Route: 048
  6. VERAPAMIL [Concomitant]
     Dosage: 180 MG
     Dates: end: 20100317
  7. HYDROCHLOROTHIAZIDE [Concomitant]
     Dosage: UNK
     Dates: end: 20100317

REACTIONS (13)
  - DEHYDRATION [None]
  - DIZZINESS [None]
  - DYSPNOEA [None]
  - DYSSTASIA [None]
  - FUNGAL INFECTION [None]
  - HYPOTENSION [None]
  - HYPOVOLAEMIA [None]
  - LYME DISEASE [None]
  - OEDEMA PERIPHERAL [None]
  - PRURITUS [None]
  - SKIN IRRITATION [None]
  - SWELLING [None]
  - SWELLING FACE [None]
